FAERS Safety Report 10068614 (Version 4)
Quarter: 2014Q2

REPORT INFORMATION
  Report Type: Report from Study
  Country: US (occurrence: US)
  Receive Date: 20140409
  Receipt Date: 20140613
  Transmission Date: 20141212
  Serious: Yes (Congenital Anomaly, Other)
  Sender: FDA-Public Use
  Company Number: US-GILEAD-2014-0098470

PATIENT
  Sex: Female
  Weight: 2.24 kg

DRUGS (5)
  1. EMTRICITABINE/TENOFOVIR DISOPROXIL FUMARATE [Suspect]
     Indication: HIV INFECTION
     Dosage: 1 DF, QD
     Route: 064
     Dates: start: 20130512, end: 20140124
  2. RITONAVIR [Suspect]
     Indication: HIV INFECTION
     Dosage: 100 MG, QD
     Route: 064
     Dates: start: 20130512, end: 20140124
  3. ATAZANAVIR SULFATE [Suspect]
     Indication: HIV INFECTION
     Dosage: 300 MG, QD
     Route: 064
     Dates: start: 20130512, end: 20131122
  4. ATAZANAVIR SULFATE [Suspect]
     Dosage: 400 MG, BID
     Route: 064
     Dates: start: 20131123, end: 20140124
  5. FOLIC ACID [Concomitant]
     Indication: SUPPLEMENTATION THERAPY
     Dosage: UNK
     Route: 064
     Dates: start: 2013, end: 2013

REACTIONS (4)
  - Patent ductus arteriosus [Unknown]
  - Atrioventricular septal defect [Unknown]
  - Congenital mitral valve incompetence [Unknown]
  - Trisomy 21 [Unknown]
